FAERS Safety Report 13200659 (Version 5)
Quarter: 2017Q1

REPORT INFORMATION
  Report Type: Spontaneous
  Country: NL (occurrence: NL)
  Receive Date: 20170208
  Receipt Date: 20170314
  Transmission Date: 20170428
  Serious: Yes (Other)
  Sender: FDA-Public Use
  Company Number: NL-TEVA-737392ISR

PATIENT
  Age: 19 Year
  Sex: Female

DRUGS (1)
  1. ISOTRETINO?NE AUROBINDO 10 MG [Suspect]
     Active Substance: ISOTRETINOIN
     Indication: ACNE
     Dosage: 20 MILLIGRAM DAILY; SOFT CAPSULES
     Dates: start: 20161221

REACTIONS (1)
  - Haematochezia [Recovered/Resolved]

NARRATIVE: CASE EVENT DATE: 20161221
